FAERS Safety Report 9678871 (Version 2)
Quarter: 2013Q4

REPORT INFORMATION
  Report Type: Spontaneous
  Country: US (occurrence: US)
  Receive Date: 20131108
  Receipt Date: 20131108
  Transmission Date: 20140711
  Serious: Yes (Hospitalization)
  Sender: FDA-Public Use
  Company Number: US-B.I. PHARMACEUTICALS,INC./RIDGEFIELD-2013-BI-13771BP

PATIENT
  Sex: Female
  Weight: 61.23 kg

DRUGS (5)
  1. PRADAXA [Suspect]
     Indication: ANTICOAGULANT THERAPY
     Dosage: 150 MG
     Dates: start: 20120607, end: 20120611
  2. PRADAXA [Suspect]
     Indication: ATRIAL FIBRILLATION
  3. ASPIRIN [Concomitant]
  4. ALPRAZOLAM [Concomitant]
  5. DILTIAZEM [Concomitant]

REACTIONS (2)
  - Haemorrhagic diathesis [Unknown]
  - Abdominal wall haematoma [Unknown]
